FAERS Safety Report 8572535-1 (Version None)
Quarter: 2012Q3

REPORT INFORMATION
  Report Type: 
  Country: None (occurrence: None)
  Receive Date: 20120806
  Receipt Date: 20120801
  Transmission Date: 20120928
  Serious: Yes (Other)
  Sender: FDA-Public Use
  Company Number: US-ROCHE-1081159

PATIENT
  Sex: Female

DRUGS (5)
  1. KLONOPIN [Concomitant]
     Indication: RESTLESS LEGS SYNDROME
     Route: 048
     Dates: start: 20100101
  2. ERIVEDGE [Suspect]
     Indication: BASAL CELL CARCINOMA
     Route: 048
     Dates: start: 20120228, end: 20120512
  3. CITALOPRAM HYDROBROMIDE [Concomitant]
     Indication: DEPRESSION
     Route: 048
     Dates: start: 19980101
  4. SYNTHROID [Concomitant]
     Indication: HYPOTHYROIDISM
     Dates: start: 20040101
  5. ASPIRIN [Concomitant]
     Route: 048
     Dates: start: 20110101

REACTIONS (4)
  - ALOPECIA [None]
  - DYSGEUSIA [None]
  - NAUSEA [None]
  - ABDOMINAL PAIN UPPER [None]
